FAERS Safety Report 18575182 (Version 2)
Quarter: 2021Q1

REPORT INFORMATION
  Report Type: Spontaneous
  Country: US (occurrence: US)
  Receive Date: 20201203
  Receipt Date: 20210115
  Transmission Date: 20210419
  Serious: No
  Sender: FDA-Public Use
  Company Number: US-ASTRAZENECA-2020SF59152

PATIENT
  Sex: Female
  Weight: 83.9 kg

DRUGS (5)
  1. BYDUREON [Suspect]
     Active Substance: EXENATIDE
     Indication: DIABETES MELLITUS
     Route: 058
     Dates: start: 2019
  2. OMEPRAZOLE. [Suspect]
     Active Substance: OMEPRAZOLE
     Route: 048
  3. METFORMIN [Suspect]
     Active Substance: METFORMIN HYDROCHLORIDE
     Indication: TYPE 2 DIABETES MELLITUS
     Route: 048
  4. METFORMIN [Suspect]
     Active Substance: METFORMIN HYDROCHLORIDE
     Indication: TYPE 2 DIABETES MELLITUS
     Dosage: 1000 MG IN THE MORNING AND 1000 MG AT NIGHT
     Route: 048
  5. ZOFRAN [Concomitant]
     Active Substance: ONDANSETRON HYDROCHLORIDE
     Dosage: AS REQUIRED

REACTIONS (12)
  - Muscle spasms [Recovering/Resolving]
  - Illness [Unknown]
  - Injection site haemorrhage [Unknown]
  - Vomiting [Recovering/Resolving]
  - Device issue [Unknown]
  - Device leakage [Unknown]
  - Blood glucose fluctuation [Unknown]
  - Feeding disorder [Recovering/Resolving]
  - Pain in extremity [Unknown]
  - Nausea [Not Recovered/Not Resolved]
  - Incorrect dose administered by device [Unknown]
  - Dizziness [Not Recovered/Not Resolved]
